FAERS Safety Report 6759768-1 (Version None)
Quarter: 2010Q2

REPORT INFORMATION
  Report Type: 
  Country: None (occurrence: None)
  Receive Date: 20100608
  Receipt Date: 20100604
  Transmission Date: 20101027
  Serious: Yes (Life-Threatening, Hospitalization)
  Sender: FDA-Public Use
  Company Number: ES-JNJFOC-20100601320

PATIENT
  Age: 47 Year
  Sex: Male

DRUGS (5)
  1. RISPERDAL [Suspect]
     Indication: SCHIZOPHRENIA
     Route: 048
  2. AMITRIPTYLINE [Interacting]
     Indication: SCHIZOPHRENIA
     Route: 048
  3. ZOLPIDEM [Interacting]
     Indication: SCHIZOPHRENIA
     Route: 065
  4. IDALPREM [Interacting]
     Indication: SCHIZOPHRENIA
     Route: 048
  5. SINOGAN [Interacting]
     Indication: SCHIZOPHRENIA
     Route: 048

REACTIONS (3)
  - DEPRESSED LEVEL OF CONSCIOUSNESS [None]
  - DRUG INTERACTION [None]
  - MUSCULOSKELETAL STIFFNESS [None]
